FAERS Safety Report 8875814 (Version 1)
Quarter: 2012Q4

REPORT INFORMATION
  Report Type: 
  Country: US (occurrence: US)
  Receive Date: 20121030
  Receipt Date: 20121030
  Transmission Date: 20130627
  Serious: Yes (Other)
  Sender: FDA-Public Use
  Company Number: US-GLAXOSMITHKLINE-A0998637A

PATIENT
  Age: 63 Year
  Sex: Female

DRUGS (6)
  1. ADVAIR [Suspect]
     Indication: ASTHMA
     Dosage: 1PUFF Twice per day
     Route: 055
  2. LEVOTHYROXINE [Concomitant]
  3. ANASTROZOLE [Concomitant]
  4. PRILOSEC [Concomitant]
  5. MULTIVITAMINS [Concomitant]
  6. RADIATION [Concomitant]

REACTIONS (3)
  - Breast cancer [Not Recovered/Not Resolved]
  - Cataract [Not Recovered/Not Resolved]
  - Dyspepsia [Not Recovered/Not Resolved]
